FAERS Safety Report 8440716-3 (Version None)
Quarter: 2012Q2

REPORT INFORMATION
  Report Type: 
  Country: None (occurrence: None)
  Receive Date: 20120615
  Receipt Date: 20120605
  Transmission Date: 20120825
  Serious: Yes (Hospitalization)
  Sender: FDA-Public Use
  Company Number: US-BAYER-2012-021888

PATIENT
  Age: 40 Year
  Sex: Female
  Weight: 84 kg

DRUGS (13)
  1. BETA BLOCKING AGENTS [Concomitant]
  2. ACE INHIBITOR NOS [Concomitant]
  3. DROSPIRENONE AND ETHINYL ESTRADIOL [Suspect]
     Indication: CONTRACEPTION
     Dosage: UNK
     Dates: start: 20080708, end: 20090212
  4. CYMBALTA [Concomitant]
     Indication: DEPRESSION
     Dosage: 1 PILL DAILY
     Route: 048
     Dates: start: 20070101
  5. RAMIPRIL [Concomitant]
  6. LOPRESSOR [Concomitant]
  7. YASMIN [Suspect]
     Indication: MENORRHAGIA
  8. DROSPIRENONE AND ETHINYL ESTRADIOL [Suspect]
     Indication: MENORRHAGIA
  9. YASMIN [Suspect]
     Indication: CONTRACEPTION
     Dosage: UNK
     Dates: start: 20050519, end: 20080702
  10. LIPITOR [Concomitant]
  11. EXCEDRIN [ACETYLSALICYLIC ACID,CAFFEINE,PARACETAMOL,SALICYLAMIDE] [Concomitant]
     Indication: HEADACHE
     Dosage: 2 PILLS AS NEEDED
     Route: 048
  12. PLAVIX [Concomitant]
  13. STATIN [Concomitant]

REACTIONS (10)
  - ELECTROCARDIOGRAM ST SEGMENT ELEVATION [None]
  - MYOCARDIAL INFARCTION [None]
  - INJURY [None]
  - CHEST DISCOMFORT [None]
  - DEPRESSION [None]
  - DYSPNOEA [None]
  - ANXIETY [None]
  - PAIN [None]
  - FIBROMYALGIA [None]
  - POST-TRAUMATIC STRESS DISORDER [None]
